FAERS Safety Report 17653647 (Version 1)
Quarter: 2020Q2

REPORT INFORMATION
  Report Type: Spontaneous
  Country: US (occurrence: US)
  Receive Date: 20200410
  Receipt Date: 20200410
  Transmission Date: 20200713
  Serious: No
  Sender: FDA-Public Use
  Company Number: US-SA-2020SA088465

PATIENT
  Sex: Female

DRUGS (1)
  1. DUPIXENT [Suspect]
     Active Substance: DUPILUMAB
     Indication: OBESITY
     Dosage: 200 MG, QOW
     Route: 058

REACTIONS (3)
  - Eyelid infection [Unknown]
  - Conjunctivitis [Recovered/Resolved]
  - Product use in unapproved indication [Unknown]
